FAERS Safety Report 25182768 (Version 1)
Quarter: 2025Q2

REPORT INFORMATION
  Report Type: Spontaneous
  Country: US (occurrence: US)
  Receive Date: 20250410
  Receipt Date: 20250410
  Transmission Date: 20250716
  Serious: Yes (Other)
  Sender: OPTINOSE INC
  Company Number: US-OptiNose US, Inc-2024OPT000106

PATIENT
  Age: 55 Year
  Sex: Male

DRUGS (1)
  1. XHANCE [Suspect]
     Active Substance: FLUTICASONE PROPIONATE
     Indication: Sinusitis
     Route: 045
     Dates: start: 20240818, end: 20240822

REACTIONS (5)
  - Immunosuppression [Not Recovered/Not Resolved]
  - COVID-19 [Unknown]
  - Nasal congestion [Not Recovered/Not Resolved]
  - Off label use [Recovered/Resolved]
  - Drug ineffective [Unknown]

NARRATIVE: CASE EVENT DATE: 20240818
